FAERS Safety Report 10430280 (Version 1)
Quarter: 2014Q3

REPORT INFORMATION
  Report Type: Spontaneous
  Country: US (occurrence: None)
  Receive Date: 20140808
  Receipt Date: 20140808
  Transmission Date: 20150326
  Serious: No
  Sender: FDA-Public Use
  Company Number: US-016115

PATIENT
  Age: 67 Year
  Sex: Male
  Weight: 59.88 kg

DRUGS (5)
  1. ZOFRAN /00955301/ ( TO CONTINUING0 [Concomitant]
  2. AMLODIPINE (TO CONTINUING) [Concomitant]
  3. DEXILANT ( TO CONTINUING) [Concomitant]
  4. PREPOPIK [Suspect]
     Active Substance: ANHYDROUS CITRIC ACID\MAGNESIUM OXIDE\SODIUM PICOSULFATE
     Indication: BOWEL PREPARATION
     Dosage: (ONE PACKET EACH DAY (TIMES UNSPECIFIED) ORAL)
     Route: 048
     Dates: start: 20140603, end: 20140604
  5. LISINOPRIL (TO CONTINUING) [Concomitant]

REACTIONS (5)
  - Oedema peripheral [None]
  - Skin exfoliation [None]
  - Swelling [None]
  - Rash erythematous [None]
  - Urticaria [None]

NARRATIVE: CASE EVENT DATE: 20140605
